FAERS Safety Report 7259003-4 (Version None)
Quarter: 2011Q1

REPORT INFORMATION
  Report Type: 
  Country: None (occurrence: None)
  Receive Date: 20110129
  Receipt Date: 20100618
  Transmission Date: 20110831
  Serious: No
  Sender: FDA-Public Use
  Company Number: US-ABBOTT-10P-163-0653224-00

PATIENT
  Sex: Female
  Weight: 72.186 kg

DRUGS (2)
  1. LEVOTHYROXINE SODIUM [Concomitant]
     Indication: AUTOIMMUNE THYROIDITIS
  2. HUMIRA [Suspect]
     Indication: PSORIASIS
     Dates: start: 20090101

REACTIONS (3)
  - PHARYNGEAL OEDEMA [None]
  - OROPHARYNGEAL PAIN [None]
  - DYSPHAGIA [None]
